FAERS Safety Report 15733991 (Version 6)
Quarter: 2025Q1

REPORT INFORMATION
  Report Type: Spontaneous
  Country: US (occurrence: US)
  Receive Date: 20181218
  Receipt Date: 20250317
  Transmission Date: 20250409
  Serious: Yes (Other)
  Sender: PFIZER
  Company Number: US-PFIZER INC-2018519262

PATIENT
  Age: 49 Year
  Sex: Female
  Weight: 65.32 kg

DRUGS (2)
  1. DESVENLAFAXINE SUCCINATE [Suspect]
     Active Substance: DESVENLAFAXINE SUCCINATE
     Indication: Bipolar II disorder
     Dosage: 100 MG, DAILY
  2. DESVENLAFAXINE SUCCINATE [Suspect]
     Active Substance: DESVENLAFAXINE SUCCINATE
     Indication: Depression
     Dosage: 100 MG, 1X/DAY
     Dates: start: 20170403

REACTIONS (3)
  - Suicidal ideation [Unknown]
  - Withdrawal syndrome [Unknown]
  - Drug ineffective [Unknown]
